FAERS Safety Report 5796101-6 (Version None)
Quarter: 2008Q3

REPORT INFORMATION
  Report Type: 
  Country: None (occurrence: None)
  Receive Date: 20080701
  Receipt Date: 20080620
  Transmission Date: 20090109
  Serious: Yes (Hospitalization)
  Sender: FDA-Public Use
  Company Number: GB-BRISTOL-MYERS SQUIBB COMPANY-14234660

PATIENT
  Age: 18 Year
  Sex: Male

DRUGS (5)
  1. METFORMIN HCL [Suspect]
     Indication: WEIGHT DECREASED
     Dosage: 500 MG (250 MG, 2 PER 1 DAY) FROM UNKNOWN TO 05APR08.
     Route: 048
     Dates: start: 20080401, end: 20080405
  2. CLOZAPINE [Interacting]
     Indication: SCHIZOPHRENIA
     Route: 048
     Dates: start: 20071102, end: 20080514
  3. DOCUSATE [Concomitant]
     Indication: CONSTIPATION
  4. HYOSCINE [Concomitant]
     Indication: SALIVARY HYPERSECRETION
     Dosage: 900MG
  5. SENNA [Concomitant]
     Indication: CONSTIPATION

REACTIONS (10)
  - DEHYDRATION [None]
  - DIARRHOEA [None]
  - DRUG INTERACTION [None]
  - ENURESIS [None]
  - GASTROENTERITIS [None]
  - NAUSEA [None]
  - NEUTROPENIA [None]
  - PNEUMONIA [None]
  - SALIVARY HYPERSECRETION [None]
  - VOMITING [None]
